FAERS Safety Report 9448994 (Version 5)
Quarter: 2014Q1

REPORT INFORMATION
  Report Type: Spontaneous
  Country: JP (occurrence: None)
  Receive Date: 20130806
  Receipt Date: 20140225
  Transmission Date: 20141002
  Serious: Yes (Hospitalization)
  Sender: FDA-Public Use
  Company Number: 2013JP002156

PATIENT
  Age: 70 Year
  Sex: Male
  Weight: 58 kg

DRUGS (9)
  1. PONATINIB (AP24534) TABLET [Suspect]
     Indication: CHRONIC MYELOID LEUKAEMIA
     Route: 048
     Dates: start: 20130610, end: 20130722
  2. PONATINIB (AP24534) TABLET [Suspect]
     Indication: HYPERTRIGLYCERIDAEMIA
     Route: 048
     Dates: start: 20130610, end: 20130722
  3. EPADEL-S [Suspect]
     Indication: HYPERTRIGLYCERIDAEMIA
     Route: 048
     Dates: start: 20130710, end: 20130722
  4. ACINON (NIZATIDINE) [Concomitant]
  5. ALDACTONE-A (SPIRONOLACTONE) [Concomitant]
  6. MOHRUS L (KETOPROFEN) [Concomitant]
  7. ZADITEN (KETOTIFEN FUMARATE) [Concomitant]
  8. HIRUDOID (MUCOPOLYSACCHARIDE POLYSULFURIC ACID ESTER) [Concomitant]
  9. AZUNOL (SODIUM GUALENATE) [Concomitant]

REACTIONS (7)
  - Hepatic function abnormal [None]
  - Aspartate aminotransferase increased [None]
  - Alanine aminotransferase increased [None]
  - Gamma-glutamyltransferase increased [None]
  - Biliary cyst [None]
  - Gallbladder disorder [None]
  - Hyperplastic cholecystopathy [None]
